FAERS Safety Report 12862108 (Version 4)
Quarter: 2021Q1

REPORT INFORMATION
  Report Type: Spontaneous
  Country: FR (occurrence: FR)
  Receive Date: 20161019
  Receipt Date: 20210220
  Transmission Date: 20210419
  Serious: Yes (Death)
  Sender: FDA-Public Use
  Company Number: FR-JNJFOC-20161009594

PATIENT
  Age: 62 Year
  Sex: Male

DRUGS (8)
  1. ARTANE [Concomitant]
     Active Substance: TRIHEXYPHENIDYL HYDROCHLORIDE
     Indication: DYSKINESIA
     Dosage: 0.40%, 30 DROPS.0.30 DROPS
     Route: 065
     Dates: start: 20160625
  2. XEPLION [Suspect]
     Active Substance: PALIPERIDONE PALMITATE
     Indication: AGGRESSION
  3. AMLOR [Concomitant]
     Active Substance: AMLODIPINE BESYLATE
     Indication: HYPERTENSION
     Dosage: 1.0.0
     Route: 065
  4. XEPLION [Suspect]
     Active Substance: PALIPERIDONE PALMITATE
  5. XEPLION [Suspect]
     Active Substance: PALIPERIDONE PALMITATE
     Indication: SCHIZOPHRENIA
     Route: 030
     Dates: start: 20160422, end: 20160624
  6. RISPERIDONE. [Suspect]
     Active Substance: RISPERIDONE
     Indication: PRODUCT USED FOR UNKNOWN INDICATION
     Dosage: START DATE /JUN/2016
     Route: 048
  7. FLUINDIONE [Concomitant]
     Active Substance: FLUINDIONE
     Indication: VENOUS THROMBOSIS LIMB
     Route: 065
     Dates: start: 20160610, end: 20160625
  8. RISPERDAL [Suspect]
     Active Substance: RISPERIDONE
     Indication: PSYCHOTIC DISORDER
     Dosage: 1.1.1
     Route: 048
     Dates: end: 20160422

REACTIONS (5)
  - Pneumonia aspiration [Fatal]
  - Product use in unapproved indication [Unknown]
  - Acute kidney injury [Fatal]
  - Acute respiratory failure [Fatal]
  - Off label use [Unknown]

NARRATIVE: CASE EVENT DATE: 20160422
